FAERS Safety Report 20583162 (Version 1)
Quarter: 2022Q1

REPORT INFORMATION
  Report Type: Spontaneous
  Country: BR (occurrence: BR)
  Receive Date: 20220311
  Receipt Date: 20220311
  Transmission Date: 20220423
  Serious: Yes (Other)
  Sender: FDA-Public Use
  Company Number: BR-PFIZER INC-202200381225

PATIENT
  Age: 91 Year
  Sex: Female
  Weight: 72 kg

DRUGS (2)
  1. XALATAN [Suspect]
     Active Substance: LATANOPROST
     Indication: Glaucoma
     Dosage: 1 DROP IN EACH EYE AT NIGHT
  2. XALATAN [Suspect]
     Active Substance: LATANOPROST
     Dosage: 1 DROP IN EACH EYE AT NIGHT

REACTIONS (2)
  - Cataract [Unknown]
  - Breast cancer [Unknown]

NARRATIVE: CASE EVENT DATE: 20170101
